FAERS Safety Report 16186575 (Version 1)
Quarter: 2019Q2

REPORT INFORMATION
  Report Type: Spontaneous
  Country: US (occurrence: US)
  Receive Date: 20190411
  Receipt Date: 20190411
  Transmission Date: 20190711
  Serious: Yes (Hospitalization, Other)
  Sender: FDA-Public Use
  Company Number: US-PFIZER INC-2019152923

PATIENT
  Age: 48 Year
  Sex: Female

DRUGS (1)
  1. PENTOSTATIN. [Suspect]
     Active Substance: PENTOSTATIN
     Indication: CUTANEOUS T-CELL LYMPHOMA
     Dosage: 5 MG/M2, UNK
     Dates: start: 19970415, end: 19970417

REACTIONS (2)
  - Thrombocytopenic purpura [Recovered/Resolved]
  - Haemolytic uraemic syndrome [Recovered/Resolved]

NARRATIVE: CASE EVENT DATE: 19970418
